FAERS Safety Report 25739686 (Version 1)
Quarter: 2025Q3

REPORT INFORMATION
  Report Type: Spontaneous
  Country: EU (occurrence: EU)
  Receive Date: 20250829
  Receipt Date: 20250829
  Transmission Date: 20251020
  Serious: Yes (Other)
  Sender: ORGANON
  Company Number: None

PATIENT
  Age: 83 Year
  Sex: Female

DRUGS (16)
  1. FOSAMAX [Suspect]
     Active Substance: ALENDRONATE SODIUM
     Dosage: 70 MG, QW(WEEKLY 70MG 4 TABLETS - 1 TABLET - 7 DAYS)
  2. METHOTREXATE [Suspect]
     Active Substance: METHOTREXATE
  3. RAMIPRIL [Suspect]
     Active Substance: RAMIPRIL
     Dosage: 10 MG, QD (10MG 28 TABLETS)
  4. TOCILIZUMAB [Suspect]
     Active Substance: TOCILIZUMAB
     Dates: start: 20250113
  5. ZALDIAR [Suspect]
     Active Substance: ACETAMINOPHEN\TRAMADOL HYDROCHLORIDE
     Dosage: 1 DF, QD (20 FILM COATED TABLETS - 1)
  6. CORTISONE ACETATE [Suspect]
     Active Substance: CORTISONE ACETATE
     Dosage: 5 MG, QOW (20MG-10MG-5MG EVERY 2 WEEKS)
  7. CORTISONE ACETATE [Suspect]
     Active Substance: CORTISONE ACETATE
     Dosage: 10 MG, QOW (20MG-10MG-5MG EVERY 2 WEEKS)
  8. CORTISONE ACETATE [Suspect]
     Active Substance: CORTISONE ACETATE
     Dosage: 20 MG, QOW (20MG-10MG-5MG EVERY 2 WEEKS)
  9. CALCIUM CARBONATE\CHOLECALCIFEROL [Suspect]
     Active Substance: CALCIUM CARBONATE\CHOLECALCIFEROL
     Dosage: 1 DF, QD (500MG/1000UI 30 CHEWABLE TABLETS - 1)
  10. PREDNISONE [Interacting]
     Active Substance: PREDNISONE
     Indication: Giant cell arteritis
     Route: 048
     Dates: start: 20250203, end: 202503
  11. PREDNISONE [Interacting]
     Active Substance: PREDNISONE
     Route: 048
     Dates: start: 20250203
  12. PREDNISONE [Interacting]
     Active Substance: PREDNISONE
     Route: 048
     Dates: start: 20250203
  13. HYDROCHLOROTHIAZIDE [Interacting]
     Active Substance: HYDROCHLOROTHIAZIDE
     Indication: Hypertension
     Dosage: 50 MG, QD (50MG 20 TABLETS)
     Route: 048
     Dates: start: 20130615, end: 20250411
  14. OMEPRAZOLE [Suspect]
     Active Substance: OMEPRAZOLE
     Dosage: 20 MG, QD (20MG 28 CAPSULES)
  15. AMITRIPTYLINE HYDROCHLORIDE [Suspect]
     Active Substance: AMITRIPTYLINE HYDROCHLORIDE
     Dosage: 1 DF, QD (10MG 24 FILM COATED TABLETS - 1 TABLET -24 HOURS)
  16. SIMVASTATIN [Suspect]
     Active Substance: SIMVASTATIN
     Dosage: 20 MG, QD
     Route: 065

REACTIONS (1)
  - Hypokalaemia [Recovering/Resolving]

NARRATIVE: CASE EVENT DATE: 20250411
